FAERS Safety Report 10036283 (Version 9)
Quarter: 2018Q3

REPORT INFORMATION
  Report Type: Spontaneous
  Country: US (occurrence: US)
  Receive Date: 20140325
  Receipt Date: 20180720
  Transmission Date: 20181010
  Serious: Yes (Hospitalization, Other)
  Sender: FDA-Public Use
  Company Number: US-DSJP-DSU-2012-04864-1

PATIENT

DRUGS (13)
  1. BENICAR [Suspect]
     Active Substance: OLMESARTAN MEDOXOMIL
     Dosage: 40 MG, QD
     Route: 048
     Dates: start: 201006
  2. BENICAR [Suspect]
     Active Substance: OLMESARTAN MEDOXOMIL
     Dosage: 40 MG, QD
     Route: 048
     Dates: start: 20101228
  3. STERIOD USE (UNSPECIFIED IMMUNOSUPPRESSANT AGENTS) [INGREDIENTS UNKNOW [Suspect]
     Active Substance: UNSPECIFIED INGREDIENT
     Indication: DIARRHOEA
     Dosage: UNKNOWN     EVERY
     Dates: start: 2012, end: 201210
  4. ZITHROMAX [Concomitant]
     Active Substance: AZITHROMYCIN DIHYDRATE
     Indication: PRODUCT USED FOR UNKNOWN INDICATION
     Dosage: EVERY
     Route: 048
  5. BENICAR [Suspect]
     Active Substance: OLMESARTAN MEDOXOMIL
     Dosage: 40 MG, QD
     Route: 048
     Dates: start: 20120528, end: 20120528
  6. BENICAR [Suspect]
     Active Substance: OLMESARTAN MEDOXOMIL
     Dosage: 40 MG, UNK
     Route: 048
     Dates: start: 201001
  7. BENICAR [Suspect]
     Active Substance: OLMESARTAN MEDOXOMIL
     Dosage: 40 MG, QD
     Route: 048
     Dates: start: 20120521, end: 20120521
  8. BENICAR [Suspect]
     Active Substance: OLMESARTAN MEDOXOMIL
     Indication: HYPERTENSION
     Dosage: 40 MG, QD
     Route: 048
     Dates: start: 20091130
  9. CLOBETASOL PROPIONATE. [Concomitant]
     Active Substance: CLOBETASOL PROPIONATE
     Indication: PRODUCT USED FOR UNKNOWN INDICATION
     Dosage: UNKNOWN TWICE DAILY    EVERY
     Route: 061
  10. DEXLANSOPRAZOLE [Suspect]
     Active Substance: DEXLANSOPRAZOLE
     Indication: ABDOMINAL PAIN UPPER
     Dosage: UNKNOWN ONCE    EVERY
     Dates: start: 20120325, end: 20120325
  11. FLUTICASONE PROPIONATE. [Concomitant]
     Active Substance: FLUTICASONE PROPIONATE
     Indication: PRODUCT USED FOR UNKNOWN INDICATION
     Dosage: UNKNOWN ONE SPRAY TWICE DAILY    EVERY
     Route: 055
  12. ELIDEL [Concomitant]
     Active Substance: PIMECROLIMUS
     Indication: PRODUCT USED FOR UNKNOWN INDICATION
     Dosage: UNKNOWN TWICE DAILY    EVERY
     Route: 061
  13. LIPITOR [Concomitant]
     Active Substance: ATORVASTATIN CALCIUM
     Indication: BLOOD CHOLESTEROL INCREASED
     Dosage: UNKNOWN     EVERY

REACTIONS (34)
  - Basal cell carcinoma [Not Recovered/Not Resolved]
  - Sacroiliitis [Unknown]
  - Neuritis [Unknown]
  - Small intestinal obstruction [Unknown]
  - Actinic keratosis [Unknown]
  - Arthritis [Unknown]
  - Gastric ulcer [Recovered/Resolved]
  - Crohn^s disease [Unknown]
  - Sprue-like enteropathy [Recovering/Resolving]
  - Hiatus hernia [Unknown]
  - Gastric polyps [Unknown]
  - Haemorrhage [Recovering/Resolving]
  - Hypotension [Recovered/Resolved]
  - Anxiety [Unknown]
  - Cytomegalovirus test positive [Unknown]
  - Haemorrhoids [Unknown]
  - Duodenitis haemorrhagic [Recovered/Resolved]
  - Duodenal ulcer [Recovered/Resolved]
  - Anal fissure [Recovered/Resolved]
  - Hepatic cyst [Unknown]
  - Melanocytic naevus [Unknown]
  - Osteopenia [Not Recovered/Not Resolved]
  - Anorectal discomfort [Recovering/Resolving]
  - Colon adenoma [Unknown]
  - Aortic arteriosclerosis [Unknown]
  - Liver function test abnormal [Unknown]
  - Depressed mood [Unknown]
  - Palpitations [Unknown]
  - Blood pressure increased [Unknown]
  - Pelvic pain [Unknown]
  - Seborrhoeic keratosis [Unknown]
  - Alopecia [Unknown]
  - Ulcer [Recovering/Resolving]
  - Perioral dermatitis [Unknown]

NARRATIVE: CASE EVENT DATE: 200912
